FAERS Safety Report 6240194-9 (Version None)
Quarter: 2009Q2

REPORT INFORMATION
  Report Type: 
  Country: None (occurrence: None)
  Receive Date: 20090623
  Receipt Date: 20080815
  Transmission Date: 20091009
  Serious: No
  Sender: FDA-Public Use
  Company Number: US-ASTRAZENECA-2007UW22865

PATIENT
  Age: 58 Year
  Sex: Female
  Weight: 38.6 kg

DRUGS (8)
  1. PULMICORT FLEXHALER [Suspect]
     Indication: ASTHMA
     Dosage: 180 MCG - 1 PUFF QD
     Route: 055
  2. XOPENEX [Concomitant]
  3. ATIVAN [Concomitant]
  4. NASONEX [Concomitant]
  5. PULMICORT [Concomitant]
     Indication: ASTHMA
     Dosage: 1 PUFF PER DAY
     Route: 055
  6. RESTASIS [Concomitant]
  7. VITAMINS [Concomitant]
  8. SUPPLEMENTS [Concomitant]

REACTIONS (2)
  - ASTHMA [None]
  - DYSPNOEA [None]
